FAERS Safety Report 18436166 (Version 1)
Quarter: 2020Q4

REPORT INFORMATION
  Report Type: Spontaneous
  Country: US (occurrence: US)
  Receive Date: 20201028
  Receipt Date: 20201028
  Transmission Date: 20210114
  Serious: Yes (Hospitalization)
  Sender: FDA-Public Use
  Company Number: US-BAYER-2020-228337

PATIENT
  Sex: Female

DRUGS (3)
  1. FELDENE [Suspect]
     Active Substance: PIROXICAM
  2. ALEVE [Suspect]
     Active Substance: NAPROXEN SODIUM
     Indication: ARTHRITIS
  3. TYLENOL [Concomitant]
     Active Substance: ACETAMINOPHEN
     Indication: ARTHRITIS

REACTIONS (2)
  - Drug hypersensitivity [Unknown]
  - Therapeutic product effect incomplete [Unknown]
